FAERS Safety Report 4466837-8 (Version None)
Quarter: 2004Q4

REPORT INFORMATION
  Report Type: 
  Country: None (occurrence: None)
  Receive Date: 20041006
  Receipt Date: 20040804
  Transmission Date: 20050328
  Serious: Yes (Hospitalization)
  Sender: FDA-Public Use
  Company Number: JP-ROCHE-376879

PATIENT
  Age: 44 Year
  Sex: Male
  Weight: 50 kg

DRUGS (4)
  1. SAQUINAVIR [Suspect]
     Indication: HIV INFECTION
     Route: 065
     Dates: start: 20030401, end: 20040106
  2. RETROVIR [Suspect]
     Indication: HIV INFECTION
     Route: 065
     Dates: start: 20030401, end: 20040106
  3. 3TC [Suspect]
     Indication: HIV INFECTION
     Route: 065
     Dates: start: 20030401, end: 20040106
  4. CROSSEIGHT M [Concomitant]
     Dates: start: 20030401, end: 20040106

REACTIONS (2)
  - LACTIC ACIDOSIS [None]
  - MYALGIA [None]
